FAERS Safety Report 13131279 (Version 4)
Quarter: 2017Q1

REPORT INFORMATION
  Report Type: Spontaneous
  Country: CA (occurrence: CA)
  Receive Date: 20170119
  Receipt Date: 20170202
  Transmission Date: 20170428
  Serious: Yes (Other)
  Sender: FDA-Public Use
  Company Number: CA-TEVA-731011ACC

PATIENT
  Sex: Female

DRUGS (8)
  1. INTERFERON [Concomitant]
     Active Substance: INTERFERON
  2. AMANTADINE [Concomitant]
     Active Substance: AMANTADINE
  3. VITAMIN C [Concomitant]
     Active Substance: ASCORBIC ACID
  4. ZOPICLONE [Concomitant]
     Active Substance: ZOPICLONE
  5. COPAXONE [Suspect]
     Active Substance: GLATIRAMER ACETATE
     Indication: PRODUCT USED FOR UNKNOWN INDICATION
     Dosage: UNKNOWN DRUG STRENGTH. WENT BACK ON COPAXONE
     Dates: start: 20150223
  6. GABAPENTIN. [Concomitant]
     Active Substance: GABAPENTIN
  7. MINOCYCLINE [Concomitant]
     Active Substance: MINOCYCLINE\MINOCYCLINE HYDROCHLORIDE
  8. VITAMIN D [Concomitant]
     Active Substance: CHOLECALCIFEROL

REACTIONS (7)
  - Multiple sclerosis relapse [Recovered/Resolved]
  - Groin pain [Unknown]
  - Lymphadenopathy [Unknown]
  - Hyperhidrosis [Unknown]
  - Weight decreased [Unknown]
  - Granulomatous lymphadenitis [Unknown]
  - Angiocentric lymphoma [Unknown]
